FAERS Safety Report 24772642 (Version 4)
Quarter: 2025Q2

REPORT INFORMATION
  Report Type: Report from Study
  Country: US (occurrence: US)
  Receive Date: 20241225
  Receipt Date: 20250421
  Transmission Date: 20250717
  Serious: No
  Sender: SANDOZ
  Company Number: US-SANDOZ-SDZ2024US103674

PATIENT
  Sex: Female

DRUGS (2)
  1. GLATOPA [Suspect]
     Active Substance: GLATIRAMER ACETATE
     Dosage: 20 MG, QD
     Route: 058
  2. GLATOPA [Suspect]
     Active Substance: GLATIRAMER ACETATE
     Indication: Multiple sclerosis
     Route: 058
     Dates: start: 20250320

REACTIONS (6)
  - Injection site mass [Unknown]
  - Injection site pruritus [Unknown]
  - Device use issue [Unknown]
  - Drug dose omission by device [Unknown]
  - Device issue [Unknown]
  - Device malfunction [Unknown]

NARRATIVE: CASE EVENT DATE: 20250101
